FAERS Safety Report 10174209 (Version 1)
Quarter: 2014Q2

REPORT INFORMATION
  Report Type: Spontaneous
  Country: BE (occurrence: BE)
  Receive Date: 20140515
  Receipt Date: 20140515
  Transmission Date: 20141212
  Serious: Yes (Other)
  Sender: FDA-Public Use
  Company Number: BE-JNJFOC-20140505400

PATIENT
  Age: 10 Year
  Sex: Female

DRUGS (4)
  1. REMICADE [Suspect]
     Indication: CROHN^S DISEASE
     Route: 042
     Dates: start: 201005
  2. REMICADE [Suspect]
     Indication: CROHN^S DISEASE
     Route: 042
     Dates: start: 200809
  3. REMICADE [Suspect]
     Indication: CROHN^S DISEASE
     Dosage: 5MG/KG AT WEEK 0, 2, 6 AND ONCE EVERY 8 WEEKS
     Route: 042
     Dates: start: 200808, end: 2010
  4. AZATHIOPRINE [Concomitant]
     Indication: CROHN^S DISEASE
     Route: 065

REACTIONS (4)
  - Failure to thrive [Unknown]
  - Therapeutic response decreased [Unknown]
  - Fatigue [Unknown]
  - Drug specific antibody present [Unknown]
